FAERS Safety Report 14435033 (Version 1)
Quarter: 2018Q1

REPORT INFORMATION
  Report Type: Spontaneous
  Country: SA (occurrence: SA)
  Receive Date: 20180125
  Receipt Date: 20180125
  Transmission Date: 20180509
  Serious: Yes (Hospitalization, Other)
  Sender: FDA-Public Use
  Company Number: SA-VISTAPHARM, INC.-VER201801-000190

PATIENT
  Age: 42 Year
  Sex: Male

DRUGS (2)
  1. LORMETAZEPAM [Suspect]
     Active Substance: LORMETAZEPAM
     Indication: BACK PAIN
  2. HYDROCODONE AND ACETAMINOPHEN [Suspect]
     Active Substance: ACETAMINOPHEN\HYDROCODONE
     Indication: BACK PAIN

REACTIONS (3)
  - Overdose [Recovered/Resolved]
  - Renal impairment [Recovered/Resolved]
  - Hepatic encephalopathy [Recovered/Resolved]
